FAERS Safety Report 7647684-2 (Version None)
Quarter: 2011Q3

REPORT INFORMATION
  Report Type: 
  Country: None (occurrence: None)
  Receive Date: 20110801
  Receipt Date: 20110801
  Transmission Date: 20111222
  Serious: Yes (Hospitalization)
  Sender: FDA-Public Use
  Company Number: None

PATIENT
  Age: 42 Year
  Sex: Female
  Weight: 62.7 kg

DRUGS (1)
  1. MERREM [Suspect]
     Dosage: 1 GRAM
     Route: 042
     Dates: start: 20110728, end: 20110729

REACTIONS (1)
  - PRURITUS [None]
